FAERS Safety Report 5932999-6 (Version None)
Quarter: 2008Q4

REPORT INFORMATION
  Report Type: 
  Country: None (occurrence: None)
  Receive Date: 20081028
  Receipt Date: 20081022
  Transmission Date: 20090506
  Serious: Yes (Hospitalization)
  Sender: FDA-Public Use
  Company Number: JP-BRISTOL-MYERS SQUIBB COMPANY-14382931

PATIENT
  Age: 79 Year
  Sex: Male

DRUGS (2)
  1. TAXOL [Suspect]
     Indication: MULTIPLE MYELOMA
     Dosage: ADMINISTRATION OF THE DRUG WAS SKIPPED ON 16-OCT-2008
     Route: 041
     Dates: start: 20081009, end: 20081009
  2. TAXOL [Suspect]
     Indication: GASTRIC CANCER
     Dosage: ADMINISTRATION OF THE DRUG WAS SKIPPED ON 16-OCT-2008
     Route: 041
     Dates: start: 20081009, end: 20081009

REACTIONS (1)
  - CYSTITIS HAEMORRHAGIC [None]
